FAERS Safety Report 9995172 (Version 1)
Quarter: 2014Q1

REPORT INFORMATION
  Report Type: Spontaneous
  Country: US (occurrence: None)
  Receive Date: 20140214
  Receipt Date: 20140214
  Transmission Date: 20141002
  Serious: Yes (Other)
  Sender: FDA-Public Use
  Company Number: US-014158

PATIENT
  Age: 62 Year
  Sex: Female

DRUGS (4)
  1. PICO-SALAX (NOT SPECIFIED) [Suspect]
     Indication: BOWEL PREPARATION
     Dosage: FIRST DOSE: 17-DEC-2013 AT 8:30PM, SECOND DOSE: 18-DEC-2013 AT 2:00 AM ORAL
     Route: 048
     Dates: start: 20131217, end: 20131218
  2. TRAZODONE [Concomitant]
  3. GLASSIA [Concomitant]
  4. DAILY VITAMINS [Concomitant]

REACTIONS (2)
  - Cardiac discomfort [None]
  - Headache [None]
